FAERS Safety Report 23737319 (Version 1)
Quarter: 2024Q2

REPORT INFORMATION
  Report Type: Spontaneous
  Country: US (occurrence: US)
  Receive Date: 20240412
  Receipt Date: 20240412
  Transmission Date: 20240716
  Serious: Yes (Other)
  Sender: FDA-Public Use
  Company Number: US-009507513-2404USA006469

PATIENT
  Age: 58 Year
  Sex: Male

DRUGS (1)
  1. KEYTRUDA [Suspect]
     Active Substance: PEMBROLIZUMAB
     Indication: Diffuse large B-cell lymphoma stage II
     Dosage: 200 MILLIGRAM EVERY 3 WEEKS

REACTIONS (5)
  - Immune-mediated enterocolitis [Unknown]
  - Abnormal faeces [Unknown]
  - Immune-mediated dermatitis [Unknown]
  - Fatigue [Unknown]
  - Product use in unapproved indication [Unknown]
